FAERS Safety Report 12486510 (Version 2)
Quarter: 2016Q3

REPORT INFORMATION
  Report Type: Spontaneous
  Country: JP (occurrence: JP)
  Receive Date: 20160621
  Receipt Date: 20160711
  Transmission Date: 20161109
  Serious: Yes (Hospitalization, Other)
  Sender: FDA-Public Use
  Company Number: JP-ELI_LILLY_AND_COMPANY-JP201606007359

PATIENT
  Age: 68 Year
  Sex: Male
  Weight: 45 kg

DRUGS (9)
  1. OXYCODONE [Concomitant]
     Active Substance: OXYCODONE
     Indication: ANALGESIC THERAPY
     Dosage: 15 MG, BID
     Route: 048
     Dates: start: 20160205, end: 20160509
  2. ALOXI [Concomitant]
     Active Substance: PALONOSETRON HYDROCHLORIDE
     Indication: ANTIEMETIC SUPPORTIVE CARE
     Dosage: .75 MG, MONTHLY (1/M)
     Route: 065
     Dates: start: 20160108, end: 20160318
  3. DEXART [Concomitant]
     Active Substance: DEXAMETHASONE SODIUM PHOSPHATE
     Indication: ANTIEMETIC SUPPORTIVE CARE
     Dosage: 6.6 MG, MONTHLY (1/M)
     Route: 065
     Dates: start: 20160108, end: 20160318
  4. FOSAPREPITANT MEGLUMINE [Concomitant]
     Active Substance: FOSAPREPITANT
     Indication: ANTIEMETIC SUPPORTIVE CARE
     Dosage: 150 MG, MONTHLY (1/M)
     Route: 065
     Dates: start: 20160108, end: 20160318
  5. CEFTRIAXONE. [Concomitant]
     Active Substance: CEFTRIAXONE
     Indication: PYREXIA
     Dosage: 1 G, QD
     Route: 065
     Dates: start: 20160408, end: 20160410
  6. ERBITUX [Suspect]
     Active Substance: CETUXIMAB
     Indication: RECTOSIGMOID CANCER METASTATIC
     Dosage: 760 MG, MONTHLY (1/M)
     Route: 042
     Dates: start: 20160108
  7. FLUOROURACIL. [Concomitant]
     Active Substance: FLUOROURACIL
     Indication: RECTOSIGMOID CANCER METASTATIC
     Dosage: 4200 MG, MONTHLY (1/M)
     Route: 065
     Dates: start: 20160108, end: 20160318
  8. LEVOFOLINATE [Concomitant]
     Active Substance: LEVOLEUCOVORIN CALCIUM
     Indication: RECTOSIGMOID CANCER METASTATIC
     Dosage: 300 MG, MONTHLY (1/M)
     Route: 065
     Dates: start: 20160108, end: 20160318
  9. IRINOTECAN [Concomitant]
     Active Substance: IRINOTECAN
     Indication: RECTOSIGMOID CANCER METASTATIC
     Dosage: 150 MG, MONTHLY (1/M)
     Route: 065
     Dates: start: 20160108, end: 20160318

REACTIONS (2)
  - Peritonitis [Recovered/Resolved]
  - Large intestine perforation [Recovered/Resolved]

NARRATIVE: CASE EVENT DATE: 20160117
